FAERS Safety Report 8904756 (Version 2)
Quarter: 2012Q4

REPORT INFORMATION
  Report Type: 
  Country: JP (occurrence: JP)
  Receive Date: 20121113
  Receipt Date: 20121210
  Transmission Date: 20130627
  Serious: Yes (Hospitalization, Other)
  Sender: FDA-Public Use
  Company Number: JP-009507513-2011SP039121

PATIENT
  Age: 28 Year
  Sex: Female

DRUGS (2)
  1. PREGNYL [Suspect]
     Indication: IN VITRO FERTILISATION
     Dosage: 5000 IU, UNK
     Route: 030
  2. HORMONES (UNSPECIFIED) [Concomitant]
     Indication: IN VITRO FERTILISATION
     Dosage: 3 under 1000 unit, QD
     Route: 030

REACTIONS (2)
  - Ovarian hyperstimulation syndrome [Recovering/Resolving]
  - Cerebral infarction [Recovering/Resolving]
